FAERS Safety Report 18874184 (Version 1)
Quarter: 2021Q1

REPORT INFORMATION
  Report Type: Spontaneous
  Country: IN (occurrence: IN)
  Receive Date: 20210210
  Receipt Date: 20210210
  Transmission Date: 20210420
  Serious: Yes (Other)
  Sender: FDA-Public Use
  Company Number: NVSC2021IN030697

PATIENT
  Age: 7 Year
  Sex: Male

DRUGS (1)
  1. CYCLOSPORINE. [Suspect]
     Active Substance: CYCLOSPORINE
     Indication: STEM CELL TRANSPLANT
     Dosage: UNK, ON DAY ?3 OF CONDITIONING REGIMEN
     Route: 042

REACTIONS (3)
  - Respiratory distress [Unknown]
  - Choking sensation [Unknown]
  - Product use in unapproved indication [Unknown]
